FAERS Safety Report 5334219-2 (Version None)
Quarter: 2007Q2

REPORT INFORMATION
  Report Type: 
  Country: None (occurrence: None)
  Receive Date: 20070525
  Receipt Date: 20060405
  Transmission Date: 20071010
  Serious: No
  Sender: FDA-Public Use
  Company Number: A0600595A

PATIENT
  Age: 27 Year
  Sex: Male

DRUGS (2)
  1. BACTROBAN [Suspect]
     Indication: NASAL DRYNESS
     Dosage: 1APP PER DAY
     Route: 045
  2. NEXIUM [Concomitant]

REACTIONS (1)
  - NASAL DISCOMFORT [None]
